FAERS Safety Report 14695108 (Version 7)
Quarter: 2021Q1

REPORT INFORMATION
  Report Type: Report from Study
  Country: US (occurrence: US)
  Receive Date: 20180329
  Receipt Date: 20210225
  Transmission Date: 20210419
  Serious: Yes (Other)
  Sender: FDA-Public Use
  Company Number: PHEH2018US011969

PATIENT
  Sex: Female

DRUGS (1)
  1. GLEEVEC [Suspect]
     Active Substance: IMATINIB MESYLATE
     Indication: PRODUCT USED FOR UNKNOWN INDICATION
     Dosage: UNK
     Route: 065

REACTIONS (13)
  - Memory impairment [Unknown]
  - Product dose omission in error [Unknown]
  - Peripheral swelling [Unknown]
  - Skin discolouration [Unknown]
  - Weight decreased [Unknown]
  - Dementia [Unknown]
  - Gait inability [Unknown]
  - Dementia Alzheimer^s type [Unknown]
  - Rhinorrhoea [Unknown]
  - Depression [Unknown]
  - Synovial cyst [Unknown]
  - Thyroid disorder [Unknown]
  - Insomnia [Unknown]
